FAERS Safety Report 9310100 (Version 1)
Quarter: 2013Q2

REPORT INFORMATION
  Report Type: Spontaneous
  Country: US (occurrence: US)
  Receive Date: 20130527
  Receipt Date: 20130527
  Transmission Date: 20140414
  Serious: No
  Sender: FDA-Public Use
  Company Number: US-BIOGENIDEC-2013BI046735

PATIENT
  Age: 48 Year
  Sex: Female

DRUGS (1)
  1. TYSABRI [Suspect]
     Indication: MULTIPLE SCLEROSIS
     Route: 042
     Dates: start: 20121231

REACTIONS (7)
  - Tremor [Not Recovered/Not Resolved]
  - Urine flow decreased [Recovered/Resolved with Sequelae]
  - Neuropathy peripheral [Recovered/Resolved with Sequelae]
  - Viral infection [Recovered/Resolved with Sequelae]
  - Hot flush [Recovered/Resolved]
  - Uhthoff^s phenomenon [Recovered/Resolved with Sequelae]
  - Fatigue [Recovered/Resolved]
